FAERS Safety Report 13628443 (Version 2)
Quarter: 2017Q2

REPORT INFORMATION
  Report Type: Spontaneous
  Country: US (occurrence: US)
  Receive Date: 20170608
  Receipt Date: 20170616
  Transmission Date: 20170830
  Serious: Yes (Other)
  Sender: FDA-Public Use
  Company Number: US-AMGEN-USASP2017085466

PATIENT
  Age: 64 Year
  Sex: Female

DRUGS (2)
  1. METHOTREXATE. [Concomitant]
     Active Substance: METHOTREXATE
     Dosage: UNK
  2. ENBREL [Suspect]
     Active Substance: ETANERCEPT
     Indication: RHEUMATOID ARTHRITIS
     Dosage: UNK
     Route: 065

REACTIONS (8)
  - Injection site extravasation [Unknown]
  - Incorrect route of drug administration [Unknown]
  - Injection site pain [Unknown]
  - Rheumatoid arthritis [Not Recovered/Not Resolved]
  - Impaired work ability [Unknown]
  - Grip strength decreased [Not Recovered/Not Resolved]
  - Drug dose omission [Unknown]
  - Accidental exposure to product [Unknown]

NARRATIVE: CASE EVENT DATE: 20170602
